FAERS Safety Report 5370421-1 (Version None)
Quarter: 2007Q2

REPORT INFORMATION
  Report Type: 
  Country: None (occurrence: None)
  Receive Date: 20070625
  Receipt Date: 20070625
  Transmission Date: 20071010
  Serious: Yes (Life-Threatening)
  Sender: FDA-Public Use
  Company Number: None

PATIENT
  Age: 79 Year
  Sex: Male
  Weight: 95.2554 kg

DRUGS (2)
  1. SKELAXIN [Suspect]
     Indication: BACK PAIN
     Dosage: SKELAXIN 3 PER DAY MOUTH
     Route: 048
  2. PROPOXYPHENE HYDROCHLORIDE [Concomitant]

REACTIONS (2)
  - DIZZINESS [None]
  - PRESYNCOPE [None]
